FAERS Safety Report 16036523 (Version 1)
Quarter: 2019Q1

REPORT INFORMATION
  Report Type: Spontaneous
  Country: US (occurrence: US)
  Receive Date: 20190305
  Receipt Date: 20190305
  Transmission Date: 20190418
  Serious: No
  Sender: FDA-Public Use
  Company Number: US-TEVA-2019-US-1018069

PATIENT
  Sex: Male
  Weight: 115.67 kg

DRUGS (2)
  1. WARFARIN [Suspect]
     Active Substance: WARFARIN
     Dosage: 1 5MG TABLET AND 1 1MG TABLET EACH DAY BY MOUTH
     Route: 048
  2. WARFARIN [Suspect]
     Active Substance: WARFARIN
     Indication: COAGULOPATHY
     Dosage: 1 5MG TABLET AND 1 1MG TABLET EACH DAY BY MOUTH
     Route: 048

REACTIONS (1)
  - Bleeding time prolonged [Unknown]
